FAERS Safety Report 7229915-6 (Version None)
Quarter: 2011Q1

REPORT INFORMATION
  Report Type: 
  Country: None (occurrence: None)
  Receive Date: 20110117
  Receipt Date: 20110104
  Transmission Date: 20110831
  Serious: Yes (Disabling, Other)
  Sender: FDA-Public Use
  Company Number: PHHY2011GB01258

PATIENT
  Age: 71 Year
  Sex: Male

DRUGS (5)
  1. LIPITOR [Suspect]
     Dosage: UNK
     Dates: end: 20100201
  2. DICLOFENAC SODIUM [Concomitant]
     Indication: ARTHRITIS
     Dosage: 50 MG, UNK
     Route: 048
     Dates: start: 19990101
  3. QUININE SULFATE [Concomitant]
     Indication: MUSCLE SPASMS
     Dosage: 200 MG, UNK
     Route: 048
     Dates: start: 20010101
  4. LIPITOR [Suspect]
     Indication: BLOOD CHOLESTEROL INCREASED
     Dosage: 10 MG, UNK
     Route: 048
     Dates: start: 20031130
  5. SIMVASTATIN [Suspect]
     Indication: BLOOD CHOLESTEROL INCREASED
     Dosage: 20 MG, UNK
     Route: 048
     Dates: start: 20091126, end: 20091201

REACTIONS (21)
  - MALAISE [None]
  - MUSCLE SPASMS [None]
  - ARTHRALGIA [None]
  - BLOOD URINE PRESENT [None]
  - INFLAMMATION [None]
  - MYALGIA [None]
  - TENDERNESS [None]
  - SWELLING [None]
  - DIZZINESS [None]
  - EPISTAXIS [None]
  - TENDON RUPTURE [None]
  - GAIT DISTURBANCE [None]
  - DIARRHOEA [None]
  - ERECTILE DYSFUNCTION [None]
  - TENDONITIS [None]
  - LETHARGY [None]
  - IMPAIRED HEALING [None]
  - DISCOMFORT [None]
  - ABDOMINAL PAIN [None]
  - PAIN [None]
  - DECREASED APPETITE [None]
